FAERS Safety Report 4450138-8 (Version None)
Quarter: 2004Q3

REPORT INFORMATION
  Report Type: 
  Country: None (occurrence: None)
  Receive Date: 20040908
  Receipt Date: 20040830
  Transmission Date: 20050211
  Serious: Yes (Hospitalization)
  Sender: FDA-Public Use
  Company Number: ALB/04/01/USA

PATIENT
  Age: 50 Year
  Sex: Female

DRUGS (2)
  1. ALBUMIN (HUMAN) [Suspect]
     Indication: INFUSION
     Dosage: 5 ML, I.V.
     Route: 042
     Dates: start: 20040603, end: 20040603
  2. PANHEMATIN (HEMATIN) [Suspect]
     Indication: DRUG USE FOR UNKNOWN INDICATION
     Dosage: I.V.
     Route: 042

REACTIONS (2)
  - HYPOTENSION [None]
  - STENOTROPHOMONAS INFECTION [None]
